FAERS Safety Report 14071032 (Version 1)
Quarter: 2017Q4

REPORT INFORMATION
  Report Type: Spontaneous
  Country: US (occurrence: US)
  Receive Date: 20171010
  Receipt Date: 20171010
  Transmission Date: 20180321
  Serious: No
  Sender: FDA-Public Use
  Company Number: US-JNJFOC-20170921145

PATIENT
  Sex: Male

DRUGS (2)
  1. COUMADIN [Suspect]
     Active Substance: WARFARIN SODIUM
     Indication: PRODUCT USED FOR UNKNOWN INDICATION
     Route: 065
  2. IMBRUVICA [Suspect]
     Active Substance: IBRUTINIB
     Indication: CHRONIC LYMPHOCYTIC LEUKAEMIA
     Dosage: 420 UNK,UNK
     Route: 065
     Dates: start: 2017

REACTIONS (3)
  - White blood cell count decreased [Unknown]
  - Weight decreased [Unknown]
  - Oedema peripheral [Not Recovered/Not Resolved]

NARRATIVE: CASE EVENT DATE: 201708
